FAERS Safety Report 7381657-2 (Version None)
Quarter: 2011Q1

REPORT INFORMATION
  Report Type: 
  Country: None (occurrence: None)
  Receive Date: 20110329
  Receipt Date: 20110322
  Transmission Date: 20110831
  Serious: Yes (Other)
  Sender: FDA-Public Use
  Company Number: US-US-EMD SERONO, INC.-7049848

PATIENT
  Sex: Female

DRUGS (3)
  1. REBIF [Suspect]
     Route: 058
     Dates: start: 20090921, end: 20110301
  2. FLOMAX [Concomitant]
  3. UNSPECIFIED ANALGESIC [Concomitant]
     Indication: PREMEDICATION

REACTIONS (3)
  - HYPOTENSION [None]
  - INJECTION SITE PAIN [None]
  - SARCOIDOSIS [None]
